FAERS Safety Report 24463176 (Version 1)
Quarter: 2024Q4

REPORT INFORMATION
  Report Type: Report from Study
  Country: US (occurrence: US)
  Receive Date: 20241018
  Receipt Date: 20241018
  Transmission Date: 20250115
  Serious: No
  Sender: ROCHE
  Company Number: US-ROCHE-2826868

PATIENT
  Age: 60 Year
  Sex: Female

DRUGS (31)
  1. XOLAIR [Suspect]
     Active Substance: OMALIZUMAB
     Indication: Asthma
     Route: 065
     Dates: start: 20140520
  2. XOLAIR [Suspect]
     Active Substance: OMALIZUMAB
     Indication: Asthma
  3. TYLENOL WITH CODEINE [Concomitant]
     Active Substance: ACETAMINOPHEN\CODEINE PHOSPHATE
     Dosage: 1 TABLET EVERY 4-6 HOURS AS NEEDED?300-30 MG
     Dates: start: 20200725
  4. ALBUTEROL [Concomitant]
     Active Substance: ALBUTEROL
     Indication: Wheezing
     Dosage: 2.5MG/3ML?EVERY 6-8 HOURS AS NEEDED
     Dates: start: 20160614
  5. ALBUTEROL SULFATE [Concomitant]
     Active Substance: ALBUTEROL SULFATE
     Dosage: 2-PUFFS
     Dates: start: 20191127
  6. ADDERALL XR [Concomitant]
     Active Substance: AMPHETAMINE ASPARTATE\AMPHETAMINE SULFATE\DEXTROAMPHETAMINE SACCHARATE\DEXTROAMPHETAMINE SULFATE
     Route: 048
     Dates: start: 20210423
  7. ASPIRIN [Concomitant]
     Active Substance: ASPIRIN
     Route: 048
     Dates: start: 20111226
  8. PULMICORT TURBUHALER [Concomitant]
     Active Substance: BUDESONIDE
     Dates: start: 20190508
  9. SYMBICORT [Concomitant]
     Active Substance: BUDESONIDE\FORMOTEROL FUMARATE DIHYDRATE
     Dosage: 2 PUFFS 1-2 TIMES DAILY?160-4.5 MCG/ACT
     Route: 050
     Dates: start: 20170509
  10. CROMOLYN SODIUM [Concomitant]
     Active Substance: CROMOLYN SODIUM
     Dosage: 5.2 MCG/ACT?AS NEEDED IN EACH NOSTRIL
     Route: 045
     Dates: start: 20201015
  11. CYCLOBENZAPRINE HYDROCHLORIDE [Concomitant]
     Active Substance: CYCLOBENZAPRINE HYDROCHLORIDE
     Dosage: 1-2 TABLETS
     Route: 048
  12. EPINEPHRINE [Concomitant]
     Active Substance: EPINEPHRINE
     Route: 030
     Dates: start: 20210209
  13. LEXAPRO [Concomitant]
     Active Substance: ESCITALOPRAM OXALATE
     Route: 048
     Dates: start: 20210217
  14. PEPCID [Concomitant]
     Active Substance: FAMOTIDINE
     Dosage: TAKE 1-2 TABLET
     Route: 048
     Dates: start: 20210305
  15. LOFIBRA (UNITED STATES) [Concomitant]
     Dosage: 134? FREQUENCY TEXT:AT BEDTIME
     Route: 048
     Dates: start: 20190116
  16. FLUOCINONIDE [Concomitant]
     Active Substance: FLUOCINONIDE
     Dosage: 2-3 TIMES A DAY
     Route: 061
     Dates: start: 20210113
  17. FLOVENT HFA [Concomitant]
     Active Substance: FLUTICASONE PROPIONATE
     Dosage: 220 MCG/ACT?2 PUFFS EACH NOSTRIL
     Dates: start: 20201015
  18. AIRDUO RESPICLICK [Concomitant]
     Active Substance: FLUTICASONE PROPIONATE\SALMETEROL XINAFOATE
     Dosage: 1 PUFF?113-14 MCG / ACT INHALE
     Dates: start: 20201015
  19. GLUCOSAMINE CHONDROITIN COMPLEX ADVANV (UNK INGREDIENTS) [Concomitant]
     Route: 048
  20. MOTRIN [Concomitant]
     Active Substance: IBUPROFEN
     Route: 048
  21. SYNTHROID [Concomitant]
     Active Substance: LEVOTHYROXINE SODIUM
     Route: 048
     Dates: start: 20210219
  22. ZESTORETIC [Concomitant]
     Active Substance: HYDROCHLOROTHIAZIDE\LISINOPRIL
     Dosage: 10-12.5
     Route: 048
     Dates: start: 20210122, end: 20210122
  23. CLARITIN [Concomitant]
     Active Substance: LORATADINE
     Dosage: FREQUENCY TEXT:1-2 TIMES DAILY
     Route: 048
  24. MINOCIN [Concomitant]
     Active Substance: MINOCYCLINE HYDROCHLORIDE
     Dosage: BID FOR 2-4 WEEKS AS NEEDED
     Route: 048
     Dates: start: 20191122
  25. MINOCIN [Concomitant]
     Active Substance: MINOCYCLINE HYDROCHLORIDE
     Route: 048
  26. PRILOSEC [Concomitant]
     Active Substance: OMEPRAZOLE MAGNESIUM
     Route: 048
  27. PREDNISONE [Concomitant]
     Active Substance: PREDNISONE
     Dosage: 30 MG /3 DAY THEN 20 MG/2DAY THEN 10 MG/DAY
     Route: 048
  28. SULFACETAMIDE;SULFUR [Concomitant]
     Dosage: 10-5%?APPLY 2-3 TIMES DAILY
     Route: 050
     Dates: start: 20180910
  29. VALTREX [Concomitant]
     Active Substance: VALACYCLOVIR HYDROCHLORIDE
     Route: 048
     Dates: start: 20180330
  30. TRIAMCINOLONE ACETONIDE [Concomitant]
     Active Substance: TRIAMCINOLONE ACETONIDE
     Dosage: 2-3 TIMES DAILY
     Route: 061
     Dates: start: 20191122
  31. AMBIEN [Concomitant]
     Active Substance: ZOLPIDEM TARTRATE
     Dosage: FREQUENCY TEXT:AT BEDTIME
     Route: 048

REACTIONS (2)
  - Off label use [Unknown]
  - No adverse event [Unknown]
